FAERS Safety Report 15792268 (Version 1)
Quarter: 2019Q1

REPORT INFORMATION
  Report Type: Spontaneous
  Country: US (occurrence: US)
  Receive Date: 20190107
  Receipt Date: 20190107
  Transmission Date: 20190417
  Serious: Yes (Other)
  Sender: FDA-Public Use
  Company Number: US-ROCHE-2239268

PATIENT
  Sex: Female

DRUGS (7)
  1. FISH OIL [Concomitant]
     Active Substance: FISH OIL
     Dosage: ONGOING: YES
     Route: 048
  2. PRILOSEC [Concomitant]
     Active Substance: OMEPRAZOLE MAGNESIUM
     Indication: GASTROOESOPHAGEAL REFLUX DISEASE
     Dosage: PRN ;ONGOING: YES
     Route: 048
  3. TAVIST ALLERGY [Concomitant]
     Active Substance: CLEMASTINE FUMARATE
     Dosage: ONGOING: YES
     Route: 048
  4. VITAMIN B12 [Concomitant]
     Active Substance: CYANOCOBALAMIN
     Dosage: ONGOING: YES
     Route: 048
  5. PRILOSEC [Concomitant]
     Active Substance: OMEPRAZOLE MAGNESIUM
     Dosage: PRN ;ONGOING: YES
     Route: 048
  6. OCREVUS [Suspect]
     Active Substance: OCRELIZUMAB
     Indication: RELAPSING MULTIPLE SCLEROSIS
     Dosage: ONGOING: YES
     Route: 042
     Dates: start: 20170817
  7. SYNTHROID [Concomitant]
     Active Substance: LEVOTHYROXINE SODIUM
     Dosage: ONGOING: YES
     Route: 048

REACTIONS (2)
  - Muscle spasms [Not Recovered/Not Resolved]
  - Relapsing multiple sclerosis [Not Recovered/Not Resolved]
